FAERS Safety Report 8509744-3 (Version None)
Quarter: 2012Q3

REPORT INFORMATION
  Report Type: 
  Country: None (occurrence: None)
  Receive Date: 20120713
  Receipt Date: 20120626
  Transmission Date: 20120928
  Serious: No
  Sender: FDA-Public Use
  Company Number: US-ASTRAZENECA-2012SE43172

PATIENT
  Sex: Male

DRUGS (2)
  1. NEXIUM [Suspect]
     Indication: GASTRIC ULCER
     Route: 048
  2. OMEPRAZOLE [Suspect]
     Route: 048

REACTIONS (3)
  - DISEASE RECURRENCE [None]
  - GASTRIC ULCER [None]
  - DRUG INEFFECTIVE [None]
